FAERS Safety Report 12772525 (Version 1)
Quarter: 2016Q3

REPORT INFORMATION
  Report Type: Spontaneous
  Country: US (occurrence: US)
  Receive Date: 20160922
  Receipt Date: 20160922
  Transmission Date: 20161109
  Serious: No
  Sender: FDA-Public Use
  Company Number: US-BAYER-2016-181349

PATIENT
  Age: 74 Year
  Sex: Female

DRUGS (1)
  1. CLIMARA [Suspect]
     Active Substance: ESTRADIOL
     Dosage: 0.5 MG, UNK
     Route: 062

REACTIONS (4)
  - Drug dose omission [Recovered/Resolved]
  - Patient dissatisfaction with treatment [Unknown]
  - Product adhesion issue [Unknown]
  - Product colour issue [Unknown]

NARRATIVE: CASE EVENT DATE: 201608
